FAERS Safety Report 24013715 (Version 1)
Quarter: 2024Q2

REPORT INFORMATION
  Report Type: Spontaneous
  Country: FR (occurrence: FR)
  Receive Date: 20240626
  Receipt Date: 20240626
  Transmission Date: 20240716
  Serious: Yes (Hospitalization)
  Sender: FDA-Public Use
  Company Number: None

PATIENT
  Age: 12 Year
  Sex: Male

DRUGS (3)
  1. DIAZEPAM [Suspect]
     Active Substance: DIAZEPAM
     Indication: Toxicity to various agents
     Dosage: NR
     Route: 048
     Dates: start: 20240520
  2. ACETAMINOPHEN [Suspect]
     Active Substance: ACETAMINOPHEN
     Indication: Toxicity to various agents
     Dosage: NR
     Route: 048
     Dates: start: 20240520
  3. PRAZEPAM [Suspect]
     Active Substance: PRAZEPAM
     Indication: Toxicity to various agents
     Dosage: NR
     Route: 048
     Dates: start: 20240520

REACTIONS (5)
  - Speech disorder [Recovered/Resolved]
  - Amnesia [Unknown]
  - Toxicity to various agents [Recovered/Resolved]
  - Vertigo [Recovered/Resolved]
  - Vomiting [Recovered/Resolved]

NARRATIVE: CASE EVENT DATE: 20240520
